FAERS Safety Report 9894886 (Version 1)
Quarter: 2014Q1

REPORT INFORMATION
  Report Type: Spontaneous
  Country: US (occurrence: US)
  Receive Date: 20140213
  Receipt Date: 20140213
  Transmission Date: 20141002
  Serious: No
  Sender: FDA-Public Use
  Company Number: US-TEVA-462547USA

PATIENT
  Age: 55 Year
  Sex: Male
  Weight: 104.42 kg

DRUGS (6)
  1. AZILECT [Suspect]
     Indication: PARKINSON^S DISEASE
     Dates: start: 20130914
  2. AMANTADINE [Concomitant]
     Indication: PARKINSON^S DISEASE
     Dates: start: 20140123
  3. LACTULOSE [Concomitant]
     Indication: BOWEL MOVEMENT IRREGULARITY
  4. OMEPRAZOLE [Concomitant]
     Indication: DYSPEPSIA
  5. ONE-A-DAY MEN^S [Concomitant]
     Indication: VITAMIN SUPPLEMENTATION
  6. ASPIRIN [Concomitant]

REACTIONS (20)
  - Dizziness [Recovered/Resolved]
  - Fatigue [Not Recovered/Not Resolved]
  - Alopecia [Not Recovered/Not Resolved]
  - Alopecia [Not Recovered/Not Resolved]
  - Rash [Not Recovered/Not Resolved]
  - Pruritus [Not Recovered/Not Resolved]
  - Dermatitis [Not Recovered/Not Resolved]
  - Erythema [Not Recovered/Not Resolved]
  - Seborrhoea [Not Recovered/Not Resolved]
  - Dyspnoea [Unknown]
  - Dyspnoea [Unknown]
  - Insomnia [Unknown]
  - Restlessness [Unknown]
  - Headache [Unknown]
  - Anxiety [Unknown]
  - Paraesthesia [Unknown]
  - Muscle twitching [Unknown]
  - Nervousness [Unknown]
  - Tremor [Unknown]
  - Erythema [Unknown]
